FAERS Safety Report 24154592 (Version 2)
Quarter: 2024Q3

REPORT INFORMATION
  Report Type: Spontaneous
  Country: IT (occurrence: IT)
  Receive Date: 20240731
  Receipt Date: 20240803
  Transmission Date: 20241017
  Serious: Yes (Life-Threatening, Hospitalization)
  Sender: ROCHE
  Company Number: None

PATIENT
  Age: 58 Year
  Sex: Male

DRUGS (4)
  1. TOCILIZUMAB [Suspect]
     Active Substance: TOCILIZUMAB
     Indication: Cytokine release syndrome
     Dosage: 640MG ON 6/21?640MG/BID 06/22?640MG ON 6/23
     Route: 058
     Dates: start: 20240621, end: 20240623
  2. TEICOPLANIN [Concomitant]
     Active Substance: TEICOPLANIN
     Indication: Pyrexia
     Route: 042
     Dates: start: 20240623
  3. NEBIVOLOL [Concomitant]
     Active Substance: NEBIVOLOL
     Indication: Hypertension
     Dosage: 5MG/DIE
     Route: 048
  4. OLMESARTAN MEDOXOMIL [Concomitant]
     Active Substance: OLMESARTAN MEDOXOMIL
     Indication: Hypertension
     Dosage: 20MG/DIE
     Route: 048

REACTIONS (5)
  - Aphasia [Recovered/Resolved]
  - Condition aggravated [Recovering/Resolving]
  - Depressed level of consciousness [Recovered/Resolved]
  - Drug ineffective [Unknown]
  - Seizure [Recovered/Resolved]

NARRATIVE: CASE EVENT DATE: 20240621
